FAERS Safety Report 6111402-X (Version None)
Quarter: 2009Q1

REPORT INFORMATION
  Report Type: 
  Country: None (occurrence: None)
  Receive Date: 20090309
  Receipt Date: 20090303
  Transmission Date: 20090719
  Serious: Yes (Death)
  Sender: FDA-Public Use
  Company Number: ADE2009-0467

PATIENT
  Age: 49 Year
  Sex: Female

DRUGS (2)
  1. METFORMIN HCL [Suspect]
     Indication: DIABETES MELLITUS
     Dosage: 2 GM - ORAL
     Route: 048
  2. AMISULPRIDE [Suspect]
     Dosage: 600 MG - ORAL
     Route: 048

REACTIONS (1)
  - DRUG TOXICITY [None]
